FAERS Safety Report 21555259 (Version 1)
Quarter: 2022Q4

REPORT INFORMATION
  Report Type: Spontaneous
  Country: US (occurrence: None)
  Receive Date: 20221103
  Receipt Date: 20221103
  Transmission Date: 20230113
  Serious: Yes (Other)
  Sender: FDA-Public Use
  Company Number: None

PATIENT
  Age: 72 Year
  Sex: Male
  Weight: 60.9 kg

DRUGS (2)
  1. ZERBAXA [Suspect]
     Active Substance: CEFTOLOZANE SULFATE\TAZOBACTAM SODIUM
     Indication: Pneumonia pseudomonal
     Dosage: FREQUENCY : 3 TIMES A DAY;?
     Route: 042
     Dates: start: 20221005, end: 20221012
  2. BEBTELOVIMAB [Suspect]
     Active Substance: BEBTELOVIMAB

REACTIONS (4)
  - Dyspnoea [None]
  - Mental disorder [None]
  - Pathogen resistance [None]
  - Leukopenia [None]

NARRATIVE: CASE EVENT DATE: 20221012
